FAERS Safety Report 14618111 (Version 2)
Quarter: 2019Q3

REPORT INFORMATION
  Report Type: Spontaneous
  Country: US (occurrence: US)
  Receive Date: 20180309
  Receipt Date: 20190904
  Transmission Date: 20191004
  Serious: No
  Sender: FDA-Public Use
  Company Number: US-PTC THERAPEUTICS, INC.-US-2018PTC000135

PATIENT
  Sex: Male

DRUGS (1)
  1. EMFLAZA [Suspect]
     Active Substance: DEFLAZACORT
     Indication: DUCHENNE MUSCULAR DYSTROPHY
     Dosage: 18 MG, QOD
     Route: 048
     Dates: start: 20170801, end: 20190301

REACTIONS (6)
  - Skin exfoliation [Unknown]
  - Off label use [Unknown]
  - Skin disorder [Recovered/Resolved]
  - Eczema [Recovering/Resolving]
  - Fatigue [Unknown]
  - Acne [Recovered/Resolved]

NARRATIVE: CASE EVENT DATE: 2017
